FAERS Safety Report 6510722-4 (Version None)
Quarter: 2009Q4

REPORT INFORMATION
  Report Type: 
  Country: None (occurrence: None)
  Receive Date: 20091221
  Receipt Date: 20091221
  Transmission Date: 20100525
  Serious: Yes (Other)
  Sender: FDA-Public Use
  Company Number: None

PATIENT
  Sex: Female
  Weight: 56 kg

DRUGS (7)
  1. BELATACEPT 250 MG/ML BRISTOL-MYERS SQUIBB [Suspect]
     Indication: IMMUNOSUPPRESSION
     Dosage: 10 MG/KG (560 MGS.) MONTHLY IV
     Route: 042
     Dates: start: 20090729
  2. BELATACEPT 250 MG/ML BRISTOL-MYERS SQUIBB [Suspect]
  3. RAPAMUNE [Concomitant]
  4. TOPROL-XL [Concomitant]
  5. K PHOS NEUTRAL [Concomitant]
  6. BACTRIM [Concomitant]
  7. MULTI-VITAMIN [Concomitant]

REACTIONS (3)
  - ABORTION SPONTANEOUS COMPLETE [None]
  - BACK PAIN [None]
  - DRUG EXPOSURE DURING PREGNANCY [None]
